FAERS Safety Report 9561462 (Version 1)
Quarter: 2013Q3

REPORT INFORMATION
  Report Type: Spontaneous
  Country: JP (occurrence: None)
  Receive Date: 20130925
  Receipt Date: 20130925
  Transmission Date: 20140515
  Serious: Yes (Other)
  Sender: FDA-Public Use
  Company Number: DSJ-2013-20527

PATIENT
  Age: 57 Year
  Sex: Male

DRUGS (4)
  1. OLMETEC [Suspect]
     Indication: HYPERTENSION
     Dosage: 5 MG, PER ORAL
     Route: 048
     Dates: start: 201305, end: 201308
  2. CARDENALIN [Suspect]
     Indication: HYPERTENSION
     Dosage: 2 MG, PER ORAL
     Route: 048
     Dates: start: 201103, end: 201305
  3. PRECIPITATED CALCIUM CARBONATE (CALCIUM CARBONATE) (CALCIUM CARBONATE) [Concomitant]
  4. ADALAT CR (NIFEDIPINE) (NIFEDIPINE) [Concomitant]

REACTIONS (1)
  - Atrial fibrillation [None]
